FAERS Safety Report 5823207-5 (Version None)
Quarter: 2008Q3

REPORT INFORMATION
  Report Type: 
  Country: None (occurrence: None)
  Receive Date: 20080725
  Receipt Date: 20080716
  Transmission Date: 20090109
  Serious: Yes (Death, Hospitalization)
  Sender: FDA-Public Use
  Company Number: GB-JNJFOC-20070802053

PATIENT
  Age: 34 Year
  Sex: Male

DRUGS (1)
  1. LOPERAMIDE HCL [Suspect]
     Indication: DIARRHOEA
     Route: 048

REACTIONS (2)
  - ANAPHYLACTIC SHOCK [None]
  - CARDIAC ARREST [None]
